FAERS Safety Report 19834646 (Version 1)
Quarter: 2021Q3

REPORT INFORMATION
  Report Type: Other
  Country: US (occurrence: US)
  Receive Date: 20210915
  Receipt Date: 20210915
  Transmission Date: 20211014
  Serious: No
  Sender: FDA-Public Use
  Company Number: US-LEADIANT BIOSCIENCES INC-2020STPI000402

PATIENT
  Sex: Female

DRUGS (1)
  1. MATULANE [Suspect]
     Active Substance: PROCARBAZINE HYDROCHLORIDE
     Indication: BRAIN NEOPLASM MALIGNANT
     Dosage: 50 MG, 2 CAPSULES QD FOR 11, THEN 3 CAPSULES QD FOR 3 DAYS, (14 DAY TOTAL) ON DAYS 8?21 OF 42 DAY CY
     Route: 048
     Dates: start: 20200815

REACTIONS (1)
  - Fatigue [Unknown]
